FAERS Safety Report 13526322 (Version 5)
Quarter: 2017Q2

REPORT INFORMATION
  Report Type: Report from Study
  Country: US (occurrence: US)
  Receive Date: 20170509
  Receipt Date: 20170627
  Transmission Date: 20170830
  Serious: Yes (Hospitalization, Other)
  Sender: FDA-Public Use
  Company Number: PHHO2017US007531

PATIENT
  Age: 10 Year
  Sex: Male
  Weight: 29.1 kg

DRUGS (8)
  1. METHOTREXATE. [Suspect]
     Active Substance: METHOTREXATE
     Indication: ACUTE LYMPHOCYTIC LEUKAEMIA
     Dosage: 15 MG, UNK (DAYS 1, 8, 15, 22)
     Route: 037
     Dates: start: 20170303
  2. CYCLOPHOSPHAMIDE. [Suspect]
     Active Substance: CYCLOPHOSPHAMIDE
     Indication: ACUTE LYMPHOCYTIC LEUKAEMIA
     Dosage: 1050 MG, (D 1 29)
     Route: 042
     Dates: start: 20170303
  3. PEGASPARGASE [Suspect]
     Active Substance: PEGASPARGASE
     Indication: ACUTE LYMPHOCYTIC LEUKAEMIA
     Dosage: 2625 MG (DAYS 15, 43)
     Route: 042
     Dates: start: 20170317
  4. INC424A [Suspect]
     Active Substance: RUXOLITINIB
     Indication: ACUTE LYMPHOCYTIC LEUKAEMIA
     Dosage: 10 MG, BID
     Route: 048
     Dates: start: 20170303, end: 20170414
  5. INC424A [Suspect]
     Active Substance: RUXOLITINIB
     Dosage: UNK
     Route: 048
     Dates: start: 20170505
  6. MERCAPTOPURINE. [Suspect]
     Active Substance: MERCAPTOPURINE
     Indication: ACUTE LYMPHOCYTIC LEUKAEMIA
     Dosage: 75 MG, X 3/WK AND 50 MG, 4 /WK
     Route: 048
     Dates: start: 20170303
  7. CYTARABINE. [Suspect]
     Active Substance: CYTARABINE
     Indication: ACUTE LYMPHOCYTIC LEUKAEMIA
     Dosage: 78 MG, (DAYS 1-4, 8-11, 29-32, 36-39)
     Route: 042
     Dates: start: 20170303
  8. VINCRISTINE [Suspect]
     Active Substance: VINCRISTINE
     Indication: ACUTE LYMPHOCYTIC LEUKAEMIA
     Dosage: 1.6 MG (DAYS 15, 22, 43)
     Route: 042
     Dates: start: 20170317

REACTIONS (6)
  - Upper respiratory tract infection [Recovered/Resolved]
  - Pancreatitis [Recovered/Resolved]
  - Thrombocytopenia [Recovered/Resolved]
  - Lung infection [Recovering/Resolving]
  - Anaemia [Recovered/Resolved]
  - Hypertension [Not Recovered/Not Resolved]

NARRATIVE: CASE EVENT DATE: 20170421
